FAERS Safety Report 18710122 (Version 1)
Quarter: 2021Q1

REPORT INFORMATION
  Report Type: Report from Study
  Country: None (occurrence: US)
  Receive Date: 20210106
  Receipt Date: 20210106
  Transmission Date: 20210419
  Serious: Yes (Hospitalization)
  Sender: FDA-Public Use
  Company Number: US-ABBVIE-20K-163-3709072-00

PATIENT
  Sex: Female

DRUGS (3)
  1. HUMIRA [Suspect]
     Active Substance: ADALIMUMAB
     Indication: CROHN^S DISEASE
     Route: 058
  2. HUMIRA [Suspect]
     Active Substance: ADALIMUMAB
     Dosage: CITRATE FREE
     Route: 058
  3. HUMIRA [Suspect]
     Active Substance: ADALIMUMAB
     Indication: CROHN^S DISEASE
     Dosage: CITRATE FREE
     Route: 058

REACTIONS (10)
  - Abdominal pain upper [Unknown]
  - Therapeutic product effect decreased [Unknown]
  - Dysuria [Unknown]
  - Feeling abnormal [Unknown]
  - Unevaluable event [Recovered/Resolved]
  - Palpitations [Recovered/Resolved]
  - Memory impairment [Unknown]
  - Malaise [Recovering/Resolving]
  - Feeling jittery [Recovered/Resolved]
  - Dehydration [Unknown]
